FAERS Safety Report 20992115 (Version 2)
Quarter: 2022Q3

REPORT INFORMATION
  Report Type: Spontaneous
  Country: BR (occurrence: BR)
  Receive Date: 20220622
  Receipt Date: 20220630
  Transmission Date: 20221026
  Serious: Yes (Hospitalization, Other)
  Sender: FDA-Public Use
  Company Number: BR-NOVARTISPH-NVSC2022BR142195

PATIENT
  Sex: Male

DRUGS (2)
  1. EXELON [Suspect]
     Active Substance: RIVASTIGMINE TARTRATE
     Indication: Memory impairment
     Dosage: 4.6 MG, QD (PATCH 5 (CM2), 9 MG RIVASTIGMINE BASE)
     Route: 062
  2. MEMANTINE [Concomitant]
     Active Substance: MEMANTINE
     Indication: Product used for unknown indication
     Dosage: UNK
     Route: 065

REACTIONS (7)
  - Amnesia [Unknown]
  - Fall [Unknown]
  - Dizziness [Unknown]
  - Memory impairment [Unknown]
  - Product availability issue [Unknown]
  - Medication error [Unknown]
  - Off label use [Unknown]
